FAERS Safety Report 5739264-0 (Version None)
Quarter: 2008Q2

REPORT INFORMATION
  Report Type: 
  Country: None (occurrence: None)
  Receive Date: 20080515
  Receipt Date: 20080508
  Transmission Date: 20081010
  Serious: Yes (Other)
  Sender: FDA-Public Use
  Company Number: AU-AVENTIS-200813317GDDC

PATIENT
  Age: 75 Year
  Sex: Female

DRUGS (6)
  1. LANTUS [Suspect]
     Route: 058
     Dates: start: 20070101
  2. AUTOPEN INSULIN INJECTION PEN [Suspect]
     Route: 058
  3. PLAVIX [Suspect]
  4. ATENOLOL [Concomitant]
  5. AVAPRO [Concomitant]
  6. LIPITOR [Concomitant]

REACTIONS (5)
  - HUNGER [None]
  - HYPOGLYCAEMIA [None]
  - NAUSEA [None]
  - PERIPHERAL VASCULAR DISORDER [None]
  - RETINAL HAEMORRHAGE [None]
